FAERS Safety Report 21415021 (Version 1)
Quarter: 2022Q4

REPORT INFORMATION
  Report Type: Spontaneous
  Country: US (occurrence: US)
  Receive Date: 20221006
  Receipt Date: 20221006
  Transmission Date: 20230113
  Serious: No
  Sender: FDA-Public Use
  Company Number: US-ALLERGAN-2230188US

PATIENT
  Sex: Male

DRUGS (1)
  1. QULIPTA [Suspect]
     Active Substance: ATOGEPANT
     Indication: Product used for unknown indication
     Dosage: 60 MG
     Dates: start: 20220907

REACTIONS (8)
  - Memory impairment [Not Recovered/Not Resolved]
  - Anxiety [Unknown]
  - Confusional state [Unknown]
  - Mental impairment [Unknown]
  - Feeling abnormal [Unknown]
  - Product dose omission in error [Unknown]
  - Fatigue [Not Recovered/Not Resolved]
  - Drug ineffective [Unknown]
